FAERS Safety Report 6580033-X (Version None)
Quarter: 2010Q1

REPORT INFORMATION
  Report Type: 
  Country: None (occurrence: None)
  Receive Date: 20100212
  Receipt Date: 20100204
  Transmission Date: 20100710
  Serious: Yes (Hospitalization)
  Sender: FDA-Public Use
  Company Number: AU-MERCK-1002USA00698

PATIENT
  Age: 63 Year
  Sex: Female
  Weight: 54 kg

DRUGS (1)
  1. VYTORIN [Suspect]
     Route: 048

REACTIONS (3)
  - DECREASED APPETITE [None]
  - DYSPHONIA [None]
  - WEIGHT DECREASED [None]
